FAERS Safety Report 7023860-7 (Version None)
Quarter: 2010Q3

REPORT INFORMATION
  Report Type: 
  Country: None (occurrence: None)
  Receive Date: 20100916
  Receipt Date: 20100602
  Transmission Date: 20110219
  Serious: Yes (Hospitalization)
  Sender: FDA-Public Use
  Company Number: DKLU1062609

PATIENT
  Age: 1 Year
  Sex: Male
  Weight: 11.8 kg

DRUGS (14)
  1. SABRIL [Suspect]
     Indication: INFANTILE SPASMS
     Dosage: SEE IMAGE
     Route: 048
     Dates: start: 20091212, end: 20100107
  2. SABRIL [Suspect]
     Indication: INFANTILE SPASMS
     Dosage: SEE IMAGE
     Route: 048
     Dates: start: 20100107, end: 20100128
  3. SABRIL [Suspect]
     Indication: INFANTILE SPASMS
     Dosage: SEE IMAGE
     Route: 048
     Dates: start: 20100128, end: 20100313
  4. SABRIL [Suspect]
     Indication: INFANTILE SPASMS
     Dosage: SEE IMAGE
     Route: 048
     Dates: start: 20100313, end: 20100404
  5. SABRIL [Suspect]
     Indication: INFANTILE SPASMS
     Dosage: SEE IMAGE
     Route: 048
     Dates: start: 20100404, end: 20100525
  6. SABRIL [Suspect]
     Indication: INFANTILE SPASMS
     Dosage: SEE IMAGE
     Route: 048
     Dates: start: 20100525
  7. CYSTADANE (BETAINE) [Concomitant]
  8. PEROXIDINE (PIROXICAM) [Concomitant]
  9. HYDROXOCOBALAMIN (HYDROXOCOBALAMIN) [Concomitant]
  10. LEUCOVOURIN (FOLIC ACID W/VITAMINS NOS) [Concomitant]
  11. LANSOPRAZOLE [Concomitant]
  12. LEVOCARNITINE (LEVOCARNITINE) [Concomitant]
  13. DIASTAT [Concomitant]
  14. KEPPRA [Concomitant]

REACTIONS (3)
  - CONDITION AGGRAVATED [None]
  - CONVULSION [None]
  - RETINAL DEGENERATION [None]
